FAERS Safety Report 5877158-0 (Version None)
Quarter: 2008Q3

REPORT INFORMATION
  Report Type: 
  Country: None (occurrence: None)
  Receive Date: 20080908
  Receipt Date: 20080908
  Transmission Date: 20090109
  Serious: No
  Sender: FDA-Public Use
  Company Number: None

PATIENT
  Age: 87 Year
  Sex: Male
  Weight: 71.6683 kg

DRUGS (1)
  1. UROXATRAL [Suspect]
     Indication: NOCTURIA
     Dosage: 1 PILL 1 EACH DAY PO
     Route: 048
     Dates: start: 20071101, end: 20080827

REACTIONS (8)
  - ARTHRALGIA [None]
  - BACK PAIN [None]
  - BRONCHITIS [None]
  - FATIGUE [None]
  - MUSCULAR WEAKNESS [None]
  - PAIN [None]
  - PAIN IN EXTREMITY [None]
  - SINUSITIS [None]
